FAERS Safety Report 8879710 (Version 1)
Quarter: 2012Q4

REPORT INFORMATION
  Report Type: 
  Country: US (occurrence: US)
  Receive Date: 20121101
  Receipt Date: 20121101
  Transmission Date: 20130627
  Serious: Yes (Hospitalization, Other)
  Sender: FDA-Public Use
  Company Number: US-ASTELLAS-2012US010673

PATIENT
  Age: 56 None
  Sex: Male
  Weight: 104 kg

DRUGS (7)
  1. PROGRAF [Suspect]
     Indication: LIVER TRANSPLANT
     Dosage: 0.5 mg, bid
     Route: 048
  2. TELAPREVIR [Suspect]
     Indication: PRODUCT USED FOR UNKNOWN INDICATION
     Dosage: 1125 mg, Unknown/D
     Route: 048
     Dates: start: 20121008, end: 20121015
  3. PEGASYS [Suspect]
     Indication: PRODUCT USED FOR UNKNOWN INDICATION
     Dosage: 180 ug, Unknown/D
     Route: 058
     Dates: start: 20121012, end: 20121012
  4. COPEGUS [Suspect]
     Indication: PRODUCT USED FOR UNKNOWN INDICATION
     Dosage: 600 mg, Unknown/D
     Route: 048
     Dates: start: 20121008, end: 20121015
  5. MULTIVITAMINS [Concomitant]
     Indication: PRODUCT USED FOR UNKNOWN INDICATION
     Dosage: UNK
     Route: 048
     Dates: start: 20070321
  6. CALCIUM                            /00060701/ [Concomitant]
     Indication: PRODUCT USED FOR UNKNOWN INDICATION
     Dosage: 500 mg, UID/QD
     Route: 048
     Dates: start: 20080602
  7. MAGNESIUM OXIDE [Concomitant]
     Indication: PRODUCT USED FOR UNKNOWN INDICATION
     Dosage: 400 mg, bid
     Route: 048
     Dates: start: 20100222

REACTIONS (19)
  - Oesophageal varices haemorrhage [Unknown]
  - Anion gap increased [Unknown]
  - Hernia repair [Unknown]
  - Neutrophil count increased [Unknown]
  - Toxicity to various agents [Unknown]
  - Renal failure acute [Unknown]
  - Gastroenteritis shigella [Unknown]
  - Hepatic artery thrombosis [Unknown]
  - Pancreatitis acute [Unknown]
  - Toxicity to various agents [Not Recovered/Not Resolved]
  - Drug interaction [Not Recovered/Not Resolved]
  - Platelet count decreased [Unknown]
  - Blood bilirubin increased [Unknown]
  - Blood urea increased [Unknown]
  - Blood creatinine increased [Unknown]
  - Vitamin D deficiency [Unknown]
  - Dysthymic disorder [Unknown]
  - Nausea [Recovered/Resolved]
  - Vomiting [Recovered/Resolved]
